FAERS Safety Report 17201048 (Version 1)
Quarter: 2019Q4

REPORT INFORMATION
  Report Type: Spontaneous
  Country: AT (occurrence: AT)
  Receive Date: 20191226
  Receipt Date: 20191226
  Transmission Date: 20200122
  Serious: Yes (Other)
  Sender: FDA-Public Use
  Company Number: NVSC2019AT062924

PATIENT
  Sex: Male

DRUGS (2)
  1. CARBOPLATIN. [Suspect]
     Active Substance: CARBOPLATIN
     Indication: LUNG ADENOCARCINOMA
     Dosage: UNK
     Route: 042
     Dates: start: 201907, end: 201909
  2. PEMETREXED. [Suspect]
     Active Substance: PEMETREXED
     Indication: LUNG ADENOCARCINOMA
     Dosage: UNK
     Route: 042
     Dates: start: 201907, end: 201909

REACTIONS (4)
  - Pancytopenia [Unknown]
  - Malignant neoplasm progression [Unknown]
  - Hypoacusis [Unknown]
  - Lung adenocarcinoma [Unknown]
